FAERS Safety Report 14722295 (Version 4)
Quarter: 2018Q2

REPORT INFORMATION
  Report Type: Report from Study
  Country: BR (occurrence: BR)
  Receive Date: 20180405
  Receipt Date: 20180625
  Transmission Date: 20180711
  Serious: Yes (Death, Hospitalization, Other)
  Sender: FDA-Public Use
  Company Number: BR-SEATTLE GENETICS-2018SGN00663

PATIENT
  Age: 55 Year
  Sex: Male

DRUGS (4)
  1. ALLOPURINOL. [Concomitant]
     Active Substance: ALLOPURINOL
     Dosage: UNK
     Dates: start: 2018, end: 2018
  2. ACICLOVIR [Concomitant]
     Active Substance: ACYCLOVIR
     Dosage: UNK
     Dates: start: 2018, end: 2018
  3. BRENTUXIMAB VEDOTIN-MPI [Suspect]
     Active Substance: BRENTUXIMAB VEDOTIN
     Indication: HODGKIN^S DISEASE
     Dosage: UNK, Q21D
     Route: 065
     Dates: start: 20180123
  4. SULFAMETHOXAZOLE [Concomitant]
     Active Substance: SULFAMETHOXAZOLE
     Dosage: UNK
     Dates: start: 2018, end: 2018

REACTIONS (25)
  - Dehydration [Unknown]
  - Pyrexia [Not Recovered/Not Resolved]
  - Cardio-respiratory arrest [Fatal]
  - Pancreatic enlargement [Fatal]
  - Decreased appetite [Not Recovered/Not Resolved]
  - Nausea [Not Recovered/Not Resolved]
  - Infection [Fatal]
  - Anaemia [Recovered/Resolved]
  - Dyspnoea [Fatal]
  - Cough [Not Recovered/Not Resolved]
  - Abdominal distension [Not Recovered/Not Resolved]
  - Coma [Fatal]
  - Metastases to pancreas [Fatal]
  - Hepatomegaly [Fatal]
  - Rectal haemorrhage [Recovering/Resolving]
  - Influenza [Not Recovered/Not Resolved]
  - Agitation [Recovered/Resolved]
  - Hepatic encephalopathy [Fatal]
  - Weight decreased [Not Recovered/Not Resolved]
  - Oedema due to renal disease [Not Recovered/Not Resolved]
  - Metastases to liver [Fatal]
  - Renal failure [Fatal]
  - Insomnia [Recovered/Resolved]
  - Hypoaesthesia [Not Recovered/Not Resolved]
  - Diverticulitis [Recovered/Resolved]

NARRATIVE: CASE EVENT DATE: 201801
